FAERS Safety Report 16844096 (Version 1)
Quarter: 2019Q3

REPORT INFORMATION
  Report Type: Spontaneous
  Country: US (occurrence: US)
  Receive Date: 20190924
  Receipt Date: 20190924
  Transmission Date: 20191005
  Serious: Yes (Death)
  Sender: FDA-Public Use
  Company Number: US-PFIZER INC-2019408669

PATIENT

DRUGS (2)
  1. DAURISMO [Suspect]
     Active Substance: GLASDEGIB
     Indication: LEUKAEMIA RECURRENT
     Dosage: UNK [1 CYCLE]
  2. CYTARABINE. [Suspect]
     Active Substance: CYTARABINE
     Indication: LEUKAEMIA RECURRENT
     Dosage: UNK

REACTIONS (1)
  - Death [Fatal]
